FAERS Safety Report 5751690-2 (Version None)
Quarter: 2008Q2

REPORT INFORMATION
  Report Type: 
  Country: None (occurrence: None)
  Receive Date: 20080528
  Receipt Date: 20080522
  Transmission Date: 20081010
  Serious: Yes (Life-Threatening)
  Sender: FDA-Public Use
  Company Number: PHHY2008GB08466

PATIENT
  Age: 74 Year
  Sex: Male
  Weight: 73 kg

DRUGS (6)
  1. IMATINIB MESYLATE [Suspect]
     Indication: CHRONIC MYELOID LEUKAEMIA
     Dosage: 400 MG, UNK
     Route: 048
     Dates: start: 20070901
  2. ALLOPURINOL [Concomitant]
  3. BENDROFLUMETHIAZIDE [Concomitant]
     Route: 048
  4. GLICLAZIDE [Concomitant]
  5. METFORMIN HCL [Concomitant]
     Indication: DIABETES MELLITUS
     Dosage: 850 MG, BID
  6. SIMVASTATIN [Concomitant]
     Route: 048

REACTIONS (1)
  - GLIOBLASTOMA [None]
